FAERS Safety Report 11865572 (Version 1)
Quarter: 2015Q4

REPORT INFORMATION
  Report Type: Spontaneous
  Country: CH (occurrence: CH)
  Receive Date: 20151223
  Receipt Date: 20151223
  Transmission Date: 20160305
  Serious: Yes (Hospitalization, Other)
  Sender: FDA-Public Use
  Company Number: CH-ASTRAZENECA-2015SF27161

PATIENT
  Age: 25 Year
  Sex: Male

DRUGS (3)
  1. SEROQUEL [Interacting]
     Active Substance: QUETIAPINE FUMARATE
     Route: 048
     Dates: start: 20140121, end: 20150122
  2. METHADONE [Interacting]
     Active Substance: METHADONE HYDROCHLORIDE
     Route: 048
     Dates: start: 20150121, end: 20150122
  3. ANXIOLIT [Suspect]
     Active Substance: OXAZEPAM
     Route: 048
     Dates: start: 20150121

REACTIONS (7)
  - Drug interaction [Recovered/Resolved]
  - Respiratory distress [Unknown]
  - Toxicity to various agents [Recovered/Resolved]
  - Loss of consciousness [Unknown]
  - Hypotension [Unknown]
  - Hypercapnia [Recovered/Resolved]
  - Tachycardia [Unknown]

NARRATIVE: CASE EVENT DATE: 20140121
